FAERS Safety Report 9601574 (Version 2)
Quarter: 2014Q3

REPORT INFORMATION
  Report Type: Spontaneous
  Country: RO (occurrence: RO)
  Receive Date: 20131007
  Receipt Date: 20140718
  Transmission Date: 20150326
  Serious: Yes (Death)
  Sender: FDA-Public Use
  Company Number: RO-ROCHE-1283870

PATIENT
  Age: 36 Year
  Sex: Female
  Weight: 41.2 kg

DRUGS (2)
  1. OXALIPLATIN. [Suspect]
     Active Substance: OXALIPLATIN
     Indication: ADENOCARCINOMA
     Dosage: DILUTED IN A 5% GLUCOSE SOLUTION INTRAVENOUSLY OVER 120 MIN ON DAY 1
     Route: 042
  2. XELODA [Suspect]
     Active Substance: CAPECITABINE
     Indication: ADENOCARCINOMA
     Dosage: ADMINISTERED TWICE DAILY FROM DAYS 1 TO14, FOLLOWED BY 1-WEEK DRUG HOLIDAY, IN A 21-DAY CYCLE
     Route: 048

REACTIONS (5)
  - Hepatic steatosis [Fatal]
  - Multi-organ failure [Fatal]
  - Pancreatitis chronic [Fatal]
  - Myocardial fibrosis [Fatal]
  - Enteritis [Fatal]
